FAERS Safety Report 13431298 (Version 2)
Quarter: 2017Q3

REPORT INFORMATION
  Report Type: Report from Study
  Country: CH (occurrence: CH)
  Receive Date: 20170412
  Receipt Date: 20170913
  Transmission Date: 20171127
  Serious: Yes (Other)
  Sender: FDA-Public Use
  Company Number: PHHY2017CH053425

PATIENT
  Age: 0 Year
  Sex: Male
  Weight: 2.65 kg

DRUGS (15)
  1. RINGER LACTAT [Concomitant]
     Indication: FOETAL EXPOSURE DURING PREGNANCY
     Dosage: MATERNAL DOSE: 5350 ML, QD
     Route: 064
  2. RINGER LACTAT [Concomitant]
     Dosage: MATERNAL DOSE: 1000 ML, QD
     Route: 064
  3. IBUPROFEN. [Concomitant]
     Active Substance: IBUPROFEN
     Indication: FOETAL EXPOSURE DURING PREGNANCY
     Dosage: MATERNAL DOSE: 400 MG, QD
     Route: 064
  4. MORPHIN [Concomitant]
     Active Substance: MORPHINE
     Indication: FOETAL EXPOSURE DURING PREGNANCY
     Dosage: MATERNAL DOSE: 2 MG, QD
     Route: 064
  5. CARBETOCIN [Concomitant]
     Active Substance: CARBETOCIN
     Indication: FOETAL EXPOSURE DURING PREGNANCY
     Dosage: MATERNAL DOSE: 100 UG, QD
     Route: 064
  6. AMOCILLIN [Concomitant]
     Indication: FOETAL EXPOSURE DURING PREGNANCY
     Dosage: MATERNAL DOSE: 2.2 G, QID
     Route: 064
  7. GILENYA [Suspect]
     Active Substance: FINGOLIMOD HYDROCHLORIDE
     Indication: FOETAL EXPOSURE DURING PREGNANCY
     Dosage: MATERNAL DOSE: 0.5 MG, QD
     Route: 064
  8. SIMETICON [Concomitant]
     Indication: FOETAL EXPOSURE DURING PREGNANCY
     Dosage: MATERNAL DOSE: 42 MG, TID
     Route: 064
  9. DALTEPARIN [Concomitant]
     Active Substance: DALTEPARIN
     Indication: FOETAL EXPOSURE DURING PREGNANCY
     Dosage: MATERNAL DOSE: 5000 OT, QD
     Route: 064
  10. NITROGLYCERIN. [Concomitant]
     Active Substance: NITROGLYCERIN
     Indication: FOETAL EXPOSURE DURING PREGNANCY
     Dosage: MATERNAL DOSE: 50 MG, QD
     Route: 064
  11. NACL.9% [Concomitant]
     Indication: FOETAL EXPOSURE DURING PREGNANCY
     Dosage: MATERNAL DOSE: 100 ML,QD
     Route: 064
  12. DICLOFENAC [Concomitant]
     Active Substance: DICLOFENAC
     Indication: FOETAL EXPOSURE DURING PREGNANCY
     Dosage: MATERNAL DOSE: 50 MG, TID
     Route: 064
  13. PARAFFIN [Concomitant]
     Active Substance: PARAFFIN
     Indication: FOETAL EXPOSURE DURING PREGNANCY
     Dosage: MATERNAL DOSE: 20 ML, QD
     Route: 064
  14. EPHEDRIN [Concomitant]
     Active Substance: EPHEDRINE HYDROCHLORIDE
     Indication: FOETAL EXPOSURE DURING PREGNANCY
     Dosage: MATERNAL DOSE: 5.1 MG, QD
     Route: 064
  15. PARACETAMOL [Concomitant]
     Active Substance: ACETAMINOPHEN
     Indication: FOETAL EXPOSURE DURING PREGNANCY
     Dosage: MATERNAL DOSE: 1 G, QID
     Route: 064

REACTIONS (3)
  - Premature baby [Unknown]
  - Foetal exposure during pregnancy [Unknown]
  - Foetal growth restriction [Recovered/Resolved]

NARRATIVE: CASE EVENT DATE: 20170113
